FAERS Safety Report 7330878-3 (Version None)
Quarter: 2011Q1

REPORT INFORMATION
  Report Type: 
  Country: None (occurrence: None)
  Receive Date: 20110304
  Receipt Date: 20110220
  Transmission Date: 20110831
  Serious: Yes (Other)
  Sender: FDA-Public Use
  Company Number: US-JNJFOC-20110207175

PATIENT
  Age: 83 Year
  Weight: 36.29 kg

DRUGS (1)
  1. EXTRA STRENGTH TYLENOL PM [Suspect]
     Indication: INSOMNIA
     Route: 048

REACTIONS (2)
  - HALLUCINATION [None]
  - PRODUCT PACKAGING QUANTITY ISSUE [None]
